FAERS Safety Report 19199719 (Version 11)
Quarter: 2024Q3

REPORT INFORMATION
  Report Type: Report from Study
  Country: US (occurrence: US)
  Receive Date: 20210430
  Receipt Date: 20240904
  Transmission Date: 20241017
  Serious: Yes (Other)
  Sender: TAKEDA
  Company Number: US-TAKEDA-US201932875

PATIENT
  Sex: Female

DRUGS (7)
  1. HUMAN IMMUNOGLOBULIN G [Suspect]
     Active Substance: HUMAN IMMUNOGLOBULIN G
     Indication: Selective IgA immunodeficiency
     Dosage: 10 GRAM, 1/WEEK
     Route: 042
  2. HUMAN IMMUNOGLOBULIN G [Suspect]
     Active Substance: HUMAN IMMUNOGLOBULIN G
     Indication: Primary immunodeficiency syndrome
     Dosage: 10 GRAM, 1/WEEK
     Route: 058
  3. HUMAN IMMUNOGLOBULIN G [Suspect]
     Active Substance: HUMAN IMMUNOGLOBULIN G
     Dosage: 10 GRAM, 1/WEEK
     Route: 065
  4. HYQVIA [Suspect]
     Active Substance: HUMAN IMMUNOGLOBULIN G\HYALURONIDASE (HUMAN RECOMBINANT)
     Indication: Primary immunodeficiency syndrome
     Dosage: 40 GRAM, MONTHLY
     Route: 058
  5. HYQVIA [Suspect]
     Active Substance: HUMAN IMMUNOGLOBULIN G\HYALURONIDASE (HUMAN RECOMBINANT)
     Indication: Selective IgA immunodeficiency
     Dosage: UNK
     Route: 058
  6. COVID-19 VACCINE NOS [Suspect]
     Active Substance: COVID-19 VACCINE
     Indication: COVID-19 immunisation
     Dosage: UNK
     Route: 065
  7. PREDNISONE [Suspect]
     Active Substance: PREDNISONE
     Indication: Back pain
     Dosage: UNK
     Route: 065

REACTIONS (37)
  - Diabetes mellitus [Unknown]
  - Skin cancer [Unknown]
  - Weight decreased [Unknown]
  - Illness [Unknown]
  - Injury associated with device [Unknown]
  - Toothache [Unknown]
  - Herpes zoster [Unknown]
  - Incorrect dose administered [Unknown]
  - Ear pain [Recovered/Resolved]
  - Feeling abnormal [Unknown]
  - Infusion site bruising [Unknown]
  - Infusion site erythema [Unknown]
  - Infusion site swelling [Unknown]
  - Fatigue [Unknown]
  - Multiple allergies [Unknown]
  - Pulmonary pain [Unknown]
  - Skin irritation [Unknown]
  - Depression [Unknown]
  - Food allergy [Unknown]
  - Obsessive-compulsive disorder [Unknown]
  - Infusion site discharge [Recovered/Resolved]
  - Device infusion issue [Unknown]
  - Blood glucose decreased [Unknown]
  - Skin laceration [Unknown]
  - Tooth fracture [Unknown]
  - Wrist fracture [Unknown]
  - Seasonal allergy [Unknown]
  - Foot fracture [Unknown]
  - Poor venous access [Unknown]
  - Infusion site rash [Unknown]
  - Sinusitis [Unknown]
  - Influenza [Unknown]
  - Infusion site haemorrhage [Unknown]
  - Pain [Unknown]
  - Abdominal distension [Unknown]
  - Influenza like illness [Unknown]
  - Nausea [Unknown]
